FAERS Safety Report 25575468 (Version 1)
Quarter: 2025Q3

REPORT INFORMATION
  Report Type: Spontaneous
  Country: US (occurrence: US)
  Receive Date: 20250718
  Receipt Date: 20250718
  Transmission Date: 20251021
  Serious: Yes (Hospitalization, Disabling, Other)
  Sender: JOHNSON AND JOHNSON
  Company Number: US-JNJFOC-20250718540

PATIENT
  Age: 59 Year
  Sex: Female
  Weight: 104.33 kg

DRUGS (2)
  1. SPRAVATO [Suspect]
     Active Substance: ESKETAMINE
     Indication: Depression
     Route: 045
     Dates: start: 20240826, end: 20240826
  2. SPRAVATO [Suspect]
     Active Substance: ESKETAMINE
     Indication: Bipolar disorder
     Route: 045
     Dates: start: 20240919, end: 20250526

REACTIONS (7)
  - Hypomania [Recovering/Resolving]
  - Peripheral arterial occlusive disease [Recovering/Resolving]
  - Hypertension [Recovering/Resolving]
  - Psychotic disorder [Unknown]
  - Delusion [Unknown]
  - Abnormal behaviour [Unknown]
  - Cardiomegaly [Unknown]

NARRATIVE: CASE EVENT DATE: 20250310
